FAERS Safety Report 8710052 (Version 2)
Quarter: 2013Q4

REPORT INFORMATION
  Report Type: Spontaneous
  Country: US (occurrence: US)
  Receive Date: 20120806
  Receipt Date: 20131105
  Transmission Date: 20140711
  Serious: Yes (Other)
  Sender: FDA-Public Use
  Company Number: US-009507513-1207USA011272

PATIENT
  Age: 45 Year
  Sex: Female

DRUGS (1)
  1. ZOCOR [Suspect]
     Dosage: UNK, QPM

REACTIONS (3)
  - Memory impairment [Unknown]
  - Skin disorder [Unknown]
  - Confusional state [Unknown]
